FAERS Safety Report 14418775 (Version 1)
Quarter: 2018Q1

REPORT INFORMATION
  Report Type: Spontaneous
  Country: JP (occurrence: JP)
  Receive Date: 20180122
  Receipt Date: 20180122
  Transmission Date: 20180509
  Serious: Yes (Death, Other)
  Sender: FDA-Public Use
  Company Number: JP-009507513-1712JPN002768J

PATIENT
  Age: 90 Year
  Sex: Male

DRUGS (1)
  1. CUBICIN [Suspect]
     Active Substance: DAPTOMYCIN
     Indication: ENDOCARDITIS
     Dosage: UNK
     Route: 041
     Dates: start: 20171220, end: 20171221

REACTIONS (1)
  - Endocarditis [Fatal]

NARRATIVE: CASE EVENT DATE: 20171222
